FAERS Safety Report 7449438-9 (Version None)
Quarter: 2011Q2

REPORT INFORMATION
  Report Type: 
  Country: None (occurrence: None)
  Receive Date: 20110502
  Receipt Date: 20110425
  Transmission Date: 20111010
  Serious: No
  Sender: FDA-Public Use
  Company Number: US-BIOGENIDEC-2011BI015304

PATIENT
  Sex: Female

DRUGS (3)
  1. AVONEX [Suspect]
     Indication: MULTIPLE SCLEROSIS
     Route: 030
     Dates: start: 20110222
  2. AVONEX [Suspect]
     Route: 030
     Dates: start: 20001017, end: 20060901
  3. AVONEX [Suspect]
     Route: 030
     Dates: start: 20070211, end: 20101122

REACTIONS (1)
  - AMNESIA [None]
